FAERS Safety Report 5646136-9 (Version None)
Quarter: 2008Q1

REPORT INFORMATION
  Report Type: 
  Country: None (occurrence: None)
  Receive Date: 20080227
  Receipt Date: 20080215
  Transmission Date: 20080703
  Serious: Yes (Disabling)
  Sender: FDA-Public Use
  Company Number: B0508539A

PATIENT
  Age: 70 Year
  Sex: Female

DRUGS (1)
  1. LAPATINIB TABLET (LAPATINIB) [Suspect]
     Indication: BREAST CANCER METASTATIC
     Dosage: ORAL
     Route: 048
     Dates: end: 20080116

REACTIONS (1)
  - GASTROINTESTINAL TOXICITY [None]
